FAERS Safety Report 20893729 (Version 2)
Quarter: 2022Q2

REPORT INFORMATION
  Report Type: Spontaneous
  Country: US (occurrence: US)
  Receive Date: 20220531
  Receipt Date: 20220618
  Transmission Date: 20220721
  Serious: No
  Sender: FDA-Public Use
  Company Number: US-BRISTOL-MYERS SQUIBB COMPANY-2022-034887

PATIENT
  Age: 77 Year
  Sex: Female
  Weight: 72.57 kg

DRUGS (1)
  1. REVLIMID [Suspect]
     Active Substance: LENALIDOMIDE
     Indication: Plasma cell myeloma
     Dosage: DAILY FOR 21/7
     Route: 048
     Dates: start: 20220101

REACTIONS (3)
  - Influenza [Unknown]
  - Dizziness [Unknown]
  - Nausea [Unknown]
